FAERS Safety Report 5409428-4 (Version None)
Quarter: 2007Q3

REPORT INFORMATION
  Report Type: 
  Country: None (occurrence: None)
  Receive Date: 20070807
  Receipt Date: 20070725
  Transmission Date: 20080115
  Serious: Yes (Hospitalization)
  Sender: FDA-Public Use
  Company Number: GXKR2007AT06391

PATIENT
  Age: 59 Year
  Sex: Male

DRUGS (10)
  1. ASPIRIN [Suspect]
     Indication: MYOCARDIAL INFARCTION
     Dosage: 500 MG, LOADING DOSE, INTRAVENOUS; 100 MG DAILY, ORAL
     Route: 042
     Dates: start: 20030101
  2. ASPIRIN [Suspect]
     Indication: MYOCARDIAL INFARCTION
     Dosage: 500 MG, LOADING DOSE, INTRAVENOUS; 100 MG DAILY, ORAL
     Route: 042
     Dates: start: 20030101
  3. ENOXAPARIN SODIUM [Suspect]
     Indication: MYOCARDIAL INFARCTION
     Dosage: SEE IMAGE
     Route: 040
     Dates: start: 20030101, end: 20030101
  4. ENOXAPARIN SODIUM [Suspect]
     Indication: MYOCARDIAL INFARCTION
     Dosage: SEE IMAGE
     Route: 040
     Dates: start: 20030101
  5. ENOXAPARIN SODIUM [Suspect]
     Indication: MYOCARDIAL INFARCTION
     Dosage: SEE IMAGE
     Route: 040
     Dates: start: 20030101
  6. CLOPIDOGREL [Suspect]
     Indication: MYOCARDIAL INFARCTION
     Dosage: 300 MG, LOADING DOSE, ORAL; 75 MG DAILY, ORAL
     Route: 048
     Dates: start: 20030101, end: 20030101
  7. ABCIXIMAB(ABCIXIMAB) [Suspect]
     Indication: MYOCARDIAL INFARCTION
     Dosage: 0.25 MG/KG, BOLUS, INTRAVENOUS; 0.125 UG/KG/MIN, INFUSION
     Route: 042
     Dates: start: 20030101, end: 20030101
  8. ABCIXIMAB(ABCIXIMAB) [Suspect]
     Indication: MYOCARDIAL INFARCTION
     Dosage: 0.25 MG/KG, BOLUS, INTRAVENOUS; 0.125 UG/KG/MIN, INFUSION
     Route: 042
     Dates: start: 20030101, end: 20030101
  9. ATORVASTATIN CALCIUM [Concomitant]
  10. METOPROLOL TARTRATE [Concomitant]

REACTIONS (1)
  - THROMBOCYTOPENIA [None]
